FAERS Safety Report 8308906-8 (Version None)
Quarter: 2012Q2

REPORT INFORMATION
  Report Type: 
  Country: None (occurrence: None)
  Receive Date: 20120421
  Receipt Date: 20120421
  Transmission Date: 20120825
  Serious: Yes (Hospitalization)
  Sender: FDA-Public Use
  Company Number: None

PATIENT
  Age: 63 Year
  Sex: Male
  Weight: 117.81 kg

DRUGS (2)
  1. DIVALPROEX SODIUM [Suspect]
     Indication: DEPRESSION
     Dosage: 1000 MG AT BEDTIME PO
     Route: 048
     Dates: start: 20070626, end: 20120414
  2. PRAVASTATIN [Suspect]
     Indication: HYPERLIPIDAEMIA
     Dosage: 20 MG AT BEDTIME PO
     Route: 048
     Dates: start: 20111129, end: 20120418

REACTIONS (1)
  - PANCREATITIS [None]
